FAERS Safety Report 5118659-2 (Version None)
Quarter: 2006Q3

REPORT INFORMATION
  Report Type: 
  Country: None (occurrence: None)
  Receive Date: 20060927
  Receipt Date: 20060914
  Transmission Date: 20061208
  Serious: Yes (Life-Threatening, Hospitalization)
  Sender: FDA-Public Use
  Company Number: 229991

PATIENT
  Age: 63 Year
  Sex: Male

DRUGS (9)
  1. MABTHERA(RITUXIMAB) CONC FOR SOLUTION FOR INFUSION [Suspect]
     Indication: LYMPHOMA
     Dosage: 700 MG, 1/WEEK, INTRAVENOUS
     Route: 042
     Dates: start: 20060822
  2. CYCLOPHOSPHAMIDE [Suspect]
     Indication: LYMPHOMA
     Dosage: 900 MG, QD, INTRAVENOUS
     Route: 042
     Dates: start: 20060824
  3. VINCRISTINE [Suspect]
     Indication: LYMPHOMA
     Dosage: 2 MG, QD, INTRAVENOUS
     Route: 042
     Dates: start: 20060823
  4. PREDNISOLONE [Suspect]
     Indication: LYMPHOMA
     Dosage: 110 MG, SINGLE, ORAL
     Route: 048
     Dates: start: 20060823, end: 20060823
  5. DOXORUBICIN HCL [Suspect]
     Indication: LYMPHOMA
     Dosage: 110 MG, QD, INTRAVENOUS
     Route: 042
     Dates: start: 20060824, end: 20060824
  6. METHOTREXATE [Suspect]
     Indication: LYMPHOMA
     Dosage: INTRAVENOUS
     Route: 042
  7. OFLOXACIN [Concomitant]
  8. NEUPOGEN [Concomitant]
  9. CEFIXIME CHEWABLE [Concomitant]

REACTIONS (1)
  - GASTRIC HAEMORRHAGE [None]
